FAERS Safety Report 10168143 (Version 1)
Quarter: 2014Q2

REPORT INFORMATION
  Report Type: Spontaneous
  Country: FR (occurrence: FR)
  Receive Date: 20140512
  Receipt Date: 20140512
  Transmission Date: 20141212
  Serious: Yes (Other)
  Sender: FDA-Public Use
  Company Number: FR-WATSON-2014-09311

PATIENT
  Age: 48 Year
  Sex: Female

DRUGS (2)
  1. VANCOMYCIN (UNKNOWN) [Suspect]
     Indication: OSTEOMYELITIS
     Dosage: UNKNOWN
     Route: 041
  2. CEFTRIAXONE [Concomitant]
     Indication: OSTEOMYELITIS
     Dosage: UNKNOWN
     Route: 065

REACTIONS (2)
  - Vena cava thrombosis [Recovered/Resolved]
  - Medical device complication [Recovered/Resolved]
